FAERS Safety Report 7271458 (Version 3)
Quarter: 2013Q2

REPORT INFORMATION
  Report Type: Spontaneous
  Country: US (occurrence: None)
  Receive Date: 20091201
  Receipt Date: 20121203
  Transmission Date: 20140414
  Serious: Yes (Hospitalization)
  Sender: FDA-Public Use
  Company Number: 2009SP023242

PATIENT
  Age: 36 Year
  Sex: Female
  Weight: 88 kg

DRUGS (1)
  1. NUVARING [Suspect]
     Indication: CONTRACEPTION
     Dates: start: 20070719, end: 20070815

REACTIONS (3)
  - DEEP VEIN THROMBOSIS [None]
  - Deep vein thrombosis [None]
  - Headache [None]
